FAERS Safety Report 21601319 (Version 1)
Quarter: 2022Q4

REPORT INFORMATION
  Report Type: Report from Study
  Country: US (occurrence: US)
  Receive Date: 20221116
  Receipt Date: 20221116
  Transmission Date: 20230113
  Serious: No
  Sender: FDA-Public Use
  Company Number: US-ABBVIE-4169272

PATIENT
  Sex: Male
  Weight: 145.14 kg

DRUGS (16)
  1. SKYRIZI [Suspect]
     Active Substance: RISANKIZUMAB-RZAA
     Indication: Illness
     Route: 058
  2. SKYRIZI [Suspect]
     Active Substance: RISANKIZUMAB-RZAA
     Indication: Psoriasis
     Route: 058
     Dates: start: 202206
  3. SKYRIZI [Suspect]
     Active Substance: RISANKIZUMAB-RZAA
     Indication: Psoriatic arthropathy
  4. SERTRALINE HCL 150 MG CAPSULE [Concomitant]
     Indication: Product used for unknown indication
  5. VITAMIN D3 25 MCG CAPSULE [Concomitant]
     Indication: Product used for unknown indication
  6. SPIRONOLACTONE 25 MG TABLET [Concomitant]
     Indication: Product used for unknown indication
  7. EXFORGE [Concomitant]
     Active Substance: AMLODIPINE BESYLATE\VALSARTAN
     Indication: Product used for unknown indication
     Dosage: 10MG-320MG TABLET
  8. T-GEL 0.5 % SHAMPOO [Concomitant]
     Indication: Product used for unknown indication
  9. OMEPRAZOLE 20 MG CAPSULE DR [Concomitant]
     Indication: Product used for unknown indication
  10. TRAMADOL HCL 50 MG TABLET [Concomitant]
     Indication: Product used for unknown indication
  11. LABETALOL HYDROCHLORIDE [Concomitant]
     Active Substance: LABETALOL HYDROCHLORIDE
     Indication: Product used for unknown indication
  12. MOMETASONE FUROATE 50 MCG SPRAY/PUMP [Concomitant]
     Indication: Product used for unknown indication
  13. CLOBETASOL EMOLLIENT [Concomitant]
     Indication: Product used for unknown indication
  14. ATORVASTATIN CALCIUM 10 MG TABLET [Concomitant]
     Indication: Product used for unknown indication
  15. CALCIPOTRIENE-BETAMETHASONE [Concomitant]
     Indication: Product used for unknown indication
  16. MODERNA COVID-19 VACCINE [Concomitant]
     Active Substance: ELASOMERAN
     Indication: COVID-19 immunisation
     Route: 030

REACTIONS (1)
  - Sinusitis [Unknown]

NARRATIVE: CASE EVENT DATE: 20220101
